FAERS Safety Report 7402931-7 (Version None)
Quarter: 2011Q2

REPORT INFORMATION
  Report Type: 
  Country: None (occurrence: None)
  Receive Date: 20110408
  Receipt Date: 20110328
  Transmission Date: 20111010
  Serious: Yes (Hospitalization)
  Sender: FDA-Public Use
  Company Number: HR-JNJFOC-20110400228

PATIENT
  Age: 26 Year
  Sex: Male

DRUGS (3)
  1. LEPONEX [Concomitant]
     Dosage: IF NEEDED
     Route: 048
  2. RISPERDAL CONSTA [Suspect]
     Indication: SCHIZOPHRENIA
     Route: 030
  3. LEPONEX [Concomitant]
     Route: 048

REACTIONS (1)
  - STRESS [None]
